FAERS Safety Report 9538256 (Version 2)
Quarter: 2013Q3

REPORT INFORMATION
  Report Type: Spontaneous
  Country: US (occurrence: US)
  Receive Date: 20130920
  Receipt Date: 20130920
  Transmission Date: 20140515
  Serious: No
  Sender: FDA-Public Use
  Company Number: US-US-EMD SERONO, INC.-7113946

PATIENT
  Sex: Female

DRUGS (2)
  1. REBIF [Suspect]
     Indication: MULTIPLE SCLEROSIS
     Route: 058
     Dates: start: 20100211
  2. UNSPECIFIED STEROIDS [Suspect]
     Indication: MULTIPLE SCLEROSIS RELAPSE

REACTIONS (4)
  - Tooth disorder [Recovered/Resolved]
  - Weight increased [Unknown]
  - Oedema peripheral [Unknown]
  - Sleep disorder [Unknown]
